FAERS Safety Report 7985021-4 (Version None)
Quarter: 2011Q4

REPORT INFORMATION
  Report Type: 
  Country: None (occurrence: None)
  Receive Date: 20111216
  Receipt Date: 20111209
  Transmission Date: 20120403
  Serious: No
  Sender: FDA-Public Use
  Company Number: US-ALLERGAN-1115245US

PATIENT
  Age: 60 Year
  Sex: Female

DRUGS (3)
  1. LATISSE [Suspect]
     Indication: OFF LABEL USE
     Dosage: 2 GTT, QHS
     Route: 061
     Dates: start: 20110801, end: 20111001
  2. LATISSE [Suspect]
     Indication: GROWTH OF EYELASHES
  3. LATISSE [Suspect]

REACTIONS (3)
  - DRUG INEFFECTIVE [None]
  - DRUG ADMINISTERED AT INAPPROPRIATE SITE [None]
  - WRONG TECHNIQUE IN DRUG USAGE PROCESS [None]
